FAERS Safety Report 8426990-8 (Version None)
Quarter: 2012Q2

REPORT INFORMATION
  Report Type: 
  Country: None (occurrence: None)
  Receive Date: 20120611
  Receipt Date: 20120529
  Transmission Date: 20120825
  Serious: Yes (Hospitalization)
  Sender: FDA-Public Use
  Company Number: US-ROCHE-1062646

PATIENT
  Sex: Female
  Weight: 72.6 kg

DRUGS (5)
  1. FLUOROURACIL [Suspect]
     Indication: COLON CANCER
     Route: 040
     Dates: start: 20120418
  2. AVASTIN [Suspect]
     Indication: COLON CANCER
     Dates: start: 20120418
  3. LEUCOVORIN CALCIUM [Suspect]
     Indication: COLON CANCER
     Dates: start: 20120418
  4. IRINOTECAN HCL [Suspect]
     Indication: COLON CANCER
     Dates: start: 20120418
  5. FLUOROURACIL [Suspect]
     Dates: start: 20120418

REACTIONS (2)
  - PANCREATITIS [None]
  - ABDOMINAL PAIN [None]
